FAERS Safety Report 24017380 (Version 2)
Quarter: 2024Q4

REPORT INFORMATION
  Report Type: Spontaneous
  Country: CA (occurrence: CA)
  Receive Date: 20240627
  Receipt Date: 20241024
  Transmission Date: 20250115
  Serious: Yes (Other)
  Sender: AUROBINDO
  Company Number: CA-AUROBINDO-AUR-APL-2024-030635

PATIENT
  Age: 46 Year
  Sex: Male

DRUGS (8)
  1. CARBOPLATIN [Suspect]
     Active Substance: CARBOPLATIN
     Indication: Lung adenocarcinoma
     Dosage: UNK UNK, CYCLICAL (4 CYCLES)
     Route: 065
     Dates: start: 202103, end: 202105
  2. CARBOPLATIN [Suspect]
     Active Substance: CARBOPLATIN
     Dosage: UNK, CYCLICAL
     Route: 065
     Dates: start: 202202, end: 202203
  3. PEMETREXED [Suspect]
     Active Substance: PEMETREXED
     Indication: Lung adenocarcinoma
     Dosage: UNK UNK, CYCLICAL (4 CYCLES)
     Route: 065
     Dates: start: 202103, end: 202105
  4. PEMETREXED [Suspect]
     Active Substance: PEMETREXED
     Dosage: UNK, CYCLICAL
     Route: 065
     Dates: start: 202202, end: 202203
  5. PEMBROLIZUMAB [Suspect]
     Active Substance: PEMBROLIZUMAB
     Indication: Lung adenocarcinoma
     Dosage: UNK UNK, CYCLICAL (4 CYCLES)
     Route: 065
     Dates: start: 202103, end: 202105
  6. PEMBROLIZUMAB [Suspect]
     Active Substance: PEMBROLIZUMAB
     Dosage: UNK (MAINTENANCE THERAPY WITH PEMBROLIZUMAB)
     Route: 065
  7. PREDNISONE [Concomitant]
     Active Substance: PREDNISONE
     Indication: Product used for unknown indication
     Dosage: UNK
     Route: 065
  8. CRIZOTINIB [Concomitant]
     Active Substance: CRIZOTINIB
     Indication: Product used for unknown indication
     Dosage: UNK
     Route: 065
     Dates: start: 202203

REACTIONS (1)
  - Drug ineffective [Unknown]
